FAERS Safety Report 9102262 (Version 1)
Quarter: 2013Q1

REPORT INFORMATION
  Report Type: Spontaneous
  Country: US (occurrence: US)
  Receive Date: 20130218
  Receipt Date: 20130218
  Transmission Date: 20140127
  Serious: No
  Sender: FDA-Public Use
  Company Number: US-BIOGENIDEC-2013BI012493

PATIENT
  Age: 47 Year
  Sex: Female

DRUGS (1)
  1. TYSABRI [Suspect]
     Indication: MULTIPLE SCLEROSIS
     Route: 042
     Dates: start: 20120724, end: 20121127

REACTIONS (4)
  - Coordination abnormal [Not Recovered/Not Resolved]
  - Eyelid cyst [Recovered/Resolved]
  - Breast cyst [Not Recovered/Not Resolved]
  - Drug ineffective [Unknown]
